FAERS Safety Report 15545711 (Version 1)
Quarter: 2018Q4

REPORT INFORMATION
  Report Type: Report from Study
  Country: CN (occurrence: CN)
  Receive Date: 20181024
  Receipt Date: 20181024
  Transmission Date: 20190205
  Serious: Yes (Other)
  Sender: FDA-Public Use
  Company Number: CN-ROCHE-1890290

PATIENT
  Sex: Female
  Weight: 48 kg

DRUGS (1)
  1. AVASTIN [Suspect]
     Active Substance: BEVACIZUMAB
     Indication: COLON CANCER
     Route: 041
     Dates: start: 20160428

REACTIONS (5)
  - Protein urine present [Unknown]
  - Hepatic lesion [Unknown]
  - Haemorrhoids [Unknown]
  - Haematochezia [Unknown]
  - Skin fissures [Unknown]
